FAERS Safety Report 8514657-7 (Version None)
Quarter: 2012Q3

REPORT INFORMATION
  Report Type: 
  Country: None (occurrence: None)
  Receive Date: 20120717
  Receipt Date: 20120709
  Transmission Date: 20120928
  Serious: Yes (Hospitalization, Other)
  Sender: FDA-Public Use
  Company Number: US-BAYER-2012-042687

PATIENT
  Age: 28 Year
  Sex: Female
  Weight: 129.25 kg

DRUGS (45)
  1. MORPHINE [Concomitant]
     Indication: COMPLEX REGIONAL PAIN SYNDROME
     Dosage: UNK, PRN
  2. PROPOXYPHENE NAPSYLATE W/ ACETAMINOPHEN [Concomitant]
     Indication: PAIN
  3. LEVAQUIN [Concomitant]
     Dosage: 750 MG, QD
     Route: 042
  4. YAZ [Suspect]
     Indication: AMENORRHOEA
     Dosage: UNK
     Dates: start: 20090828, end: 20100405
  5. GEODON [Concomitant]
     Indication: SUBSTANCE-INDUCED PSYCHOTIC DISORDER
     Dosage: 80 MG, BID
     Dates: start: 20070101
  6. ALBUTEROL [Concomitant]
     Dosage: UNK UNK, PRN
  7. PREDNISONE [Concomitant]
     Indication: ASTHMA
     Dosage: UNK
     Dates: start: 20100326
  8. ZYRTEC [Concomitant]
     Dosage: 10 MG, QD
     Route: 048
     Dates: start: 20100401
  9. ZITHROMAX [Concomitant]
  10. SINGULAIR [Concomitant]
     Indication: ASTHMA
     Dosage: 40 MG, QD
     Dates: start: 20070101
  11. FLUTICASONE PROPIONATE [Concomitant]
     Indication: ASTHMA
     Dosage: 1 PILL QD
     Dates: start: 20090101
  12. XANAX [Concomitant]
     Indication: ANXIETY
     Dosage: UNK UNK, PRN
     Dates: start: 20070101
  13. BACLOFEN [Concomitant]
     Indication: PAIN
  14. XOPENEX [Concomitant]
     Indication: ASTHMA
     Dosage: 1 PILL QD
  15. PROPOXYPHENE NAPSYLATE W/ ACETAMINOPHEN [Concomitant]
     Indication: COMPLEX REGIONAL PAIN SYNDROME
     Dosage: +#8220;100-650 T+#8221;
  16. SYMBICORT [Concomitant]
     Dosage: 160/4.5 MG, 2 PUFF(S), BID
     Route: 045
  17. ALBUTEROL [Concomitant]
     Dosage: Q6H
  18. COLACE [Concomitant]
     Dosage: 100 MG, BID
     Route: 048
     Dates: start: 20100401
  19. SOLU-MEDROL [Concomitant]
     Dosage: 125 MG, EVERY 6 HOURS
     Route: 042
  20. BUPROPION HCL [Concomitant]
     Indication: DEPRESSION
     Dosage: UNK
     Dates: start: 20070101
  21. LEXAPRO [Concomitant]
     Indication: ANXIETY
  22. MIRALAX [Concomitant]
     Indication: CONSTIPATION
     Dosage: UNK UNK, PRN
  23. FLUCONAZOLE [Concomitant]
     Indication: FUNGAL SKIN INFECTION
     Dosage: 200 MG, QD
  24. LEXAPRO [Concomitant]
     Indication: DEPRESSION
     Dosage: 1 PILL QD
     Dates: start: 20070101
  25. LYRICA [Concomitant]
     Indication: COMPLEX REGIONAL PAIN SYNDROME
     Dosage: 100 MG, TID
     Dates: start: 20080101
  26. LIDODERM [Concomitant]
     Indication: COMPLEX REGIONAL PAIN SYNDROME
     Dosage: 5 %, BID
     Dates: start: 20080101
  27. ZOFRAN [Concomitant]
     Indication: COMPLEX REGIONAL PAIN SYNDROME
     Dosage: UNK UNK, PRN
  28. ZOFRAN [Concomitant]
     Indication: PAIN
  29. IPRATROPIUM BROMIDE [Concomitant]
     Indication: ASTHMA
     Dosage: 0.5/3MG
  30. CROMOLYN SODIUM [Concomitant]
     Indication: ASTHMA
     Dosage: 20 MG/2, NEBULIZER
  31. SUDAFED 12 HOUR [Concomitant]
     Dosage: 1, BID
     Route: 048
     Dates: start: 20100401
  32. LYRICA [Concomitant]
     Indication: PAIN
  33. PILOCARPINE [Concomitant]
     Indication: DRY MOUTH
     Dosage: 1 PILL, BID
  34. OMEPRAZOLE [Concomitant]
     Indication: GASTROOESOPHAGEAL REFLUX DISEASE
     Dosage: 1 PILL QD
  35. PRIALT [Concomitant]
     Dosage: VIA INTRATHECAL INFUSION PUMP
     Route: 037
     Dates: start: 20100401
  36. LIDODERM [Concomitant]
     Indication: PAIN
  37. FEMCON FE [Concomitant]
     Indication: AMENORRHOEA
     Dosage: 1 PILL QD
  38. DIFLUCAN [Concomitant]
     Indication: CANDIDIASIS
  39. RANITIDINE [Concomitant]
     Indication: GASTROOESOPHAGEAL REFLUX DISEASE
     Dosage: 1 PILL QD
     Dates: start: 20070101
  40. BACLOFEN [Concomitant]
     Indication: COMPLEX REGIONAL PAIN SYNDROME
     Dosage: 10 MG, 1 X
     Dates: start: 20080101
  41. MORPHINE [Concomitant]
     Indication: PAIN
  42. BENZONATATE [Concomitant]
     Indication: ASTHMA
     Dosage: 1 PILL QD
  43. DUONEB [Concomitant]
     Dosage: 3 ML, NEBULIZED QAM
     Dates: start: 20100401
  44. CITRACAL [Concomitant]
     Dosage: 600 MG, BID
     Route: 048
     Dates: start: 20100401
  45. MEDROL [Concomitant]
     Indication: ASTHMA

REACTIONS (15)
  - PULMONARY EMBOLISM [None]
  - PAIN IN EXTREMITY [None]
  - DYSPNOEA [None]
  - EPISTAXIS [None]
  - PROCEDURAL SITE REACTION [None]
  - DEEP VEIN THROMBOSIS [None]
  - PULMONARY HYPERTENSION [None]
  - PAIN [None]
  - ABDOMINAL PAIN [None]
  - CHEST PAIN [None]
  - THROMBOPHLEBITIS SUPERFICIAL [None]
  - INJURY [None]
  - OEDEMA PERIPHERAL [None]
  - CARDIAC DISORDER [None]
  - NAUSEA [None]
